FAERS Safety Report 4435965-5 (Version None)
Quarter: 2004Q3

REPORT INFORMATION
  Report Type: 
  Country: None (occurrence: None)
  Receive Date: 20040726
  Receipt Date: 20040513
  Transmission Date: 20050211
  Serious: No
  Sender: FDA-Public Use
  Company Number: USA040567551

PATIENT
  Sex: Female

DRUGS (2)
  1. FORTEO [Suspect]
     Indication: OSTEOPOROSIS
     Dates: start: 20031201, end: 20040510
  2. CALCIUM [Concomitant]

REACTIONS (2)
  - BLOOD CALCIUM INCREASED [None]
  - CREATININE URINE DECREASED [None]
